FAERS Safety Report 5857335-5 (Version None)
Quarter: 2008Q3

REPORT INFORMATION
  Report Type: 
  Country: None (occurrence: None)
  Receive Date: 20080826
  Receipt Date: 20080818
  Transmission Date: 20090109
  Serious: Yes (Hospitalization)
  Sender: FDA-Public Use
  Company Number: GB-TEVA-175998ISR

PATIENT
  Age: 64 Year
  Sex: Male

DRUGS (2)
  1. CEPHALEXIN [Suspect]
     Indication: URINARY TRACT INFECTION
     Route: 048
     Dates: start: 20080707, end: 20080714
  2. BISOPROLOL FUMARATE [Suspect]
     Indication: HYPERTENSION
     Route: 048
     Dates: end: 20080717

REACTIONS (2)
  - LOSS OF CONSCIOUSNESS [None]
  - RASH PRURITIC [None]
